FAERS Safety Report 8138797-X (Version None)
Quarter: 2012Q1

REPORT INFORMATION
  Report Type: 
  Country: None (occurrence: None)
  Receive Date: 20120215
  Receipt Date: 20120210
  Transmission Date: 20120608
  Serious: No
  Sender: FDA-Public Use
  Company Number: US-BAYER-2012-014272

PATIENT
  Age: 80 Year
  Sex: Female
  Weight: 61 kg

DRUGS (5)
  1. ALEVE (CAPLET) [Suspect]
     Indication: ARTHRITIS
     Dosage: 1 IU, BID
     Route: 048
     Dates: start: 20120203
  2. IBUPROFEN (ADVIL) [Concomitant]
  3. B12-VITAMIN [Concomitant]
  4. ACETAMINOPHEN [Concomitant]
  5. PREDNISONE TAB [Concomitant]

REACTIONS (1)
  - DIZZINESS [None]
